FAERS Safety Report 4568868-6 (Version None)
Quarter: 2005Q1

REPORT INFORMATION
  Report Type: 
  Country: None (occurrence: None)
  Receive Date: 20050113
  Receipt Date: 20050113
  Transmission Date: 20050727
  Serious: Yes (Other)
  Sender: FDA-Public Use
  Company Number: None

PATIENT
  Age: 26 Year
  Sex: Female
  Weight: 99.3377 kg

DRUGS (1)
  1. MS CONTIN [Suspect]
     Dosage: 100 MG -5 TABS EVERY 12 HOURS [ ONGOINING FOR CHRONIC PAIN]

REACTIONS (1)
  - NO ADVERSE DRUG EFFECT [None]
